FAERS Safety Report 9706796 (Version 1)
Quarter: 2013Q4

REPORT INFORMATION
  Report Type: Spontaneous
  Country: US (occurrence: US)
  Receive Date: 20131125
  Receipt Date: 20131125
  Transmission Date: 20140711
  Serious: Yes (Other)
  Sender: FDA-Public Use
  Company Number: PHEH2013US024313

PATIENT
  Sex: Female

DRUGS (3)
  1. GILENYA [Suspect]
     Dosage: 0.5 MG, UNK
     Route: 048
     Dates: start: 201112
  2. XANAX [Suspect]
     Dosage: 1 MG, UNK
  3. ANTIHYPERTENSIVES [Concomitant]

REACTIONS (4)
  - Fall [Unknown]
  - Gait disturbance [Unknown]
  - Wrist fracture [Unknown]
  - Condition aggravated [Unknown]
